FAERS Safety Report 4674127-3 (Version None)
Quarter: 2005Q2

REPORT INFORMATION
  Report Type: 
  Country: None (occurrence: None)
  Receive Date: 20050524
  Receipt Date: 20050524
  Transmission Date: 20051028
  Serious: No
  Sender: FDA-Public Use
  Company Number: None

PATIENT
  Sex: Female
  Weight: 27.8962 kg

DRUGS (1)
  1. LEVOTHYROXINE SODIUM [Suspect]
     Indication: AUTOIMMUNE THYROIDITIS
     Dosage: 0.050 MG PO QD
     Route: 048

REACTIONS (2)
  - HEADACHE [None]
  - THERAPEUTIC RESPONSE UNEXPECTED WITH DRUG SUBSTITUTION [None]
